FAERS Safety Report 18980964 (Version 1)
Quarter: 2021Q1

REPORT INFORMATION
  Report Type: Spontaneous
  Country: DE (occurrence: DE)
  Receive Date: 20210308
  Receipt Date: 20210308
  Transmission Date: 20210420
  Serious: Yes (Other)
  Sender: FDA-Public Use
  Company Number: NVSC2021DE047596

PATIENT
  Age: 10 Year
  Sex: Male
  Weight: 66 kg

DRUGS (1)
  1. VOTUBIA [Suspect]
     Active Substance: EVEROLIMUS
     Indication: ASTROCYTOMA, LOW GRADE
     Dosage: 4 MG = 2.5 MG/ M2
     Route: 065

REACTIONS (2)
  - Seizure [Unknown]
  - Drug level decreased [Unknown]
